FAERS Safety Report 14559913 (Version 2)
Quarter: 2018Q2

REPORT INFORMATION
  Report Type: Spontaneous
  Country: US (occurrence: US)
  Receive Date: 20180221
  Receipt Date: 20180424
  Transmission Date: 20180711
  Serious: No
  Sender: FDA-Public Use
  Company Number: US-ASTRAZENECA-2018SE19128

PATIENT
  Age: 26197 Day
  Sex: Female
  Weight: 74.4 kg

DRUGS (1)
  1. SYMBICORT [Suspect]
     Active Substance: BUDESONIDE\FORMOTEROL FUMARATE DIHYDRATE
     Indication: ASTHMA
     Dosage: 80/4.5 UG, TWO INHALATIONS, TWICE A DAY
     Route: 055

REACTIONS (4)
  - Nasopharyngitis [Recovering/Resolving]
  - Productive cough [Not Recovered/Not Resolved]
  - Medication residue present [Not Recovered/Not Resolved]
  - Device malfunction [Unknown]

NARRATIVE: CASE EVENT DATE: 20180212
